FAERS Safety Report 5818526-2 (Version None)
Quarter: 2008Q3

REPORT INFORMATION
  Report Type: 
  Country: None (occurrence: None)
  Receive Date: 20080717
  Receipt Date: 20080703
  Transmission Date: 20090109
  Serious: Yes (Other)
  Sender: FDA-Public Use
  Company Number: 08-001105

PATIENT
  Sex: Female

DRUGS (4)
  1. ERYC [Suspect]
     Indication: PREMATURE RUPTURE OF MEMBRANES
     Dosage: 250 MG Q6H, PARENTERAL
     Route: 051
  2. ERYC [Suspect]
     Dosage: 250 MG Q6H, ORAL
     Route: 048
  3. CEPHALEXIN [Suspect]
     Indication: PREMATURE RUPTURE OF MEMBRANES
     Dosage: 500 MG Q6H, ORAL
     Route: 048
  4. CEFAZOLIN [Suspect]
     Indication: PREMATURE RUPTURE OF MEMBRANES
     Dosage: 2 GRAMS Q8H, PARENTERAL
     Route: 051

REACTIONS (3)
  - CHORIOAMNIONITIS [None]
  - DRUG EXPOSURE DURING PREGNANCY [None]
  - ENDOMETRITIS [None]
